FAERS Safety Report 11407280 (Version 1)
Quarter: 2015Q3

REPORT INFORMATION
  Report Type: Other
  Country: US (occurrence: US)
  Receive Date: 20150821
  Receipt Date: 20150821
  Transmission Date: 20151125
  Serious: Yes (Other)
  Sender: FDA-Public Use
  Company Number: US-ENDO PHARMACEUTICALS INC-2015-002469

PATIENT
  Age: 82 Year
  Sex: Male

DRUGS (3)
  1. EDEX [Suspect]
     Active Substance: ALPROSTADIL
     Indication: ERECTILE DYSFUNCTION
     Route: 011
  2. LOTEPREDNOL ETABONATE [Concomitant]
     Active Substance: LOTEPREDNOL ETABONATE
     Indication: MACULAR OEDEMA
     Dosage: 0.5%
     Route: 047
  3. BROMFENAC [Concomitant]
     Active Substance: BROMFENAC SODIUM
     Indication: MACULAR OEDEMA
     Dosage: 0.09%
     Route: 047

REACTIONS (1)
  - Cystoid macular oedema [Recovered/Resolved]
